FAERS Safety Report 17849541 (Version 1)
Quarter: 2020Q2

REPORT INFORMATION
  Report Type: Report from Study
  Country: IN (occurrence: IN)
  Receive Date: 20200602
  Receipt Date: 20200602
  Transmission Date: 20200714
  Serious: Yes (Death, Hospitalization)
  Sender: FDA-Public Use
  Company Number: NVSC2020IN151975

PATIENT
  Age: 65 Year
  Sex: Male

DRUGS (1)
  1. TASIGNA [Suspect]
     Active Substance: NILOTINIB
     Indication: CHRONIC MYELOID LEUKAEMIA
     Dosage: 400 MG, BID (TWICE A DAY)
     Route: 065
     Dates: end: 20200517

REACTIONS (2)
  - Multiple organ dysfunction syndrome [Fatal]
  - Asthenia [Unknown]

NARRATIVE: CASE EVENT DATE: 20200517
